FAERS Safety Report 14614370 (Version 1)
Quarter: 2018Q1

REPORT INFORMATION
  Report Type: Spontaneous
  Country: US (occurrence: US)
  Receive Date: 20180308
  Receipt Date: 20180308
  Transmission Date: 20180509
  Serious: Yes (Other)
  Sender: FDA-Public Use
  Company Number: US-ELI_LILLY_AND_COMPANY-US201802011687

PATIENT
  Sex: Female

DRUGS (1)
  1. EVISTA [Suspect]
     Active Substance: RALOXIFENE HYDROCHLORIDE
     Indication: BREAST DISORDER
     Dosage: 60 MG, UNKNOWN
     Route: 048
     Dates: start: 2013

REACTIONS (1)
  - Carotid arteriosclerosis [Unknown]

NARRATIVE: CASE EVENT DATE: 2017
